FAERS Safety Report 18779469 (Version 16)
Quarter: 2021Q3

REPORT INFORMATION
  Report Type: Report from Study
  Country: None (occurrence: PT)
  Receive Date: 20210125
  Receipt Date: 20210727
  Transmission Date: 20211014
  Serious: Yes (Hospitalization, Other)
  Sender: FDA-Public Use
  Company Number: PT-ABBVIE-21K-130-3739517-00

PATIENT
  Age: 83 Year
  Sex: Female

DRUGS (11)
  1. DUODOPA [Suspect]
     Active Substance: CARBIDOPA\LEVODOPA
     Dosage: 20 MG + 5 MG?MORN:8CC; MAINT:5.2CC/H;EXTRA:1CC
     Route: 050
     Dates: start: 20210514, end: 2021
  2. DUODOPA [Suspect]
     Active Substance: CARBIDOPA\LEVODOPA
     Dosage: 20 MG + 5 MG?MORN:8CC; MAINT:4.9CC/H;EXTRA:1CC
     Route: 050
     Dates: start: 2021
  3. MIRTAZAPINE. [Concomitant]
     Active Substance: MIRTAZAPINE
     Indication: PRODUCT USED FOR UNKNOWN INDICATION
     Route: 048
  4. DUODOPA [Suspect]
     Active Substance: CARBIDOPA\LEVODOPA
     Indication: PARKINSON^S DISEASE
     Dosage: 20 MG + 5 MG MORN.DOSE:8ML; MAINT:5.2ML;BLOCKADE LL0
     Route: 050
     Dates: start: 20091113, end: 20210120
  5. DUODOPA [Suspect]
     Active Substance: CARBIDOPA\LEVODOPA
     Route: 050
  6. RIVAROXABAN [Concomitant]
     Active Substance: RIVAROXABAN
     Indication: PRODUCT USED FOR UNKNOWN INDICATION
     Route: 048
  7. SINEMET [Suspect]
     Active Substance: CARBIDOPA\LEVODOPA
     Indication: PARKINSON^S DISEASE
     Route: 048
  8. SINEMET [Suspect]
     Active Substance: CARBIDOPA\LEVODOPA
     Route: 048
  9. EXELON [Concomitant]
     Active Substance: RIVASTIGMINE TARTRATE
     Indication: PRODUCT USED FOR UNKNOWN INDICATION
  10. CLOZAPINE. [Concomitant]
     Active Substance: CLOZAPINE
     Indication: PRODUCT USED FOR UNKNOWN INDICATION
     Route: 048
  11. RIVASTIGMINE. [Concomitant]
     Active Substance: RIVASTIGMINE
     Indication: PRODUCT USED FOR UNKNOWN INDICATION
     Route: 062

REACTIONS (34)
  - Medical device site exfoliation [Recovered/Resolved]
  - Device dislocation [Unknown]
  - Aggression [Not Recovered/Not Resolved]
  - Stoma site inflammation [Recovered/Resolved]
  - Device difficult to use [Not Recovered/Not Resolved]
  - X-ray abnormal [Not Recovered/Not Resolved]
  - Oxygen saturation decreased [Recovered/Resolved]
  - Embedded device [Recovered/Resolved]
  - Stoma site reaction [Recovering/Resolving]
  - Restlessness [Recovered/Resolved]
  - Aggression [Recovered/Resolved]
  - Stoma site discharge [Recovered/Resolved]
  - Pyrexia [Recovered/Resolved]
  - Stoma site discharge [Recovered/Resolved]
  - Stoma site pain [Not Recovered/Not Resolved]
  - Post procedural inflammation [Recovered/Resolved]
  - Stoma site pain [Recovered/Resolved]
  - Fibrosis [Not Recovered/Not Resolved]
  - Stoma site pain [Recovered/Resolved]
  - Stoma site infection [Not Recovered/Not Resolved]
  - Stoma site discharge [Recovering/Resolving]
  - Abdominal pain [Recovered/Resolved]
  - Stoma site infection [Recovered/Resolved]
  - On and off phenomenon [Not Recovered/Not Resolved]
  - Hernia [Not Recovered/Not Resolved]
  - Confusional state [Recovered/Resolved]
  - Pneumonia [Recovered/Resolved]
  - Proteus infection [Recovered/Resolved]
  - Stoma site hypergranulation [Not Recovered/Not Resolved]
  - Productive cough [Recovered/Resolved]
  - Scar [Not Recovered/Not Resolved]
  - Patient uncooperative [Recovered/Resolved]
  - Delusional disorder, unspecified type [Not Recovered/Not Resolved]
  - Stoma site discharge [Recovering/Resolving]

NARRATIVE: CASE EVENT DATE: 202012
